FAERS Safety Report 8984797 (Version 2)
Quarter: 2013Q1

REPORT INFORMATION
  Report Type: Spontaneous
  Country: US (occurrence: US)
  Receive Date: 20121226
  Receipt Date: 20130125
  Transmission Date: 20140127
  Serious: No
  Sender: FDA-Public Use
  Company Number: US-PFIZER INC-2012321705

PATIENT
  Age: 57 Year
  Sex: Male
  Weight: 110 kg

DRUGS (6)
  1. DEPO-TESTOSTERONE [Suspect]
     Indication: ANDROGEN DEFICIENCY
     Dosage: 200 UG, ONCE EVERY 2 WEEKS
     Route: 030
     Dates: start: 20121030
  2. DEPO-TESTOSTERONE [Suspect]
     Dosage: 200 UG, ONCE EVERY 2 WEEKS
     Route: 030
     Dates: end: 20121227
  3. ATRIPLA [Concomitant]
     Indication: HIV INFECTION
     Dosage: UNK, 1/DAY
     Dates: start: 20071101
  4. CRESTOR [Concomitant]
     Indication: HIV INFECTION
     Dosage: 20 MG, 1X/DAY
     Dates: start: 20100218
  5. CRESTOR [Concomitant]
     Indication: LIPIDS INCREASED
  6. SIMVASTATIN [Concomitant]
     Indication: HIV INFECTION
     Dosage: 20 MG, 1X/DAY

REACTIONS (10)
  - Muscle disorder [Unknown]
  - Dizziness [Recovered/Resolved]
  - Palpitations [Recovered/Resolved]
  - Dyspnoea [Recovered/Resolved]
  - Dysgeusia [Recovered/Resolved]
  - Lip pain [Recovered/Resolved]
  - Paraesthesia oral [Recovered/Resolved]
  - Pallor [Recovered/Resolved]
  - Feeling abnormal [Recovered/Resolved]
  - Cough [Recovered/Resolved]
